FAERS Safety Report 6744202-8 (Version None)
Quarter: 2010Q2

REPORT INFORMATION
  Report Type: 
  Country: None (occurrence: None)
  Receive Date: 20100527
  Receipt Date: 20100522
  Transmission Date: 20101027
  Serious: Yes (Other)
  Sender: FDA-Public Use
  Company Number: GXBR2010US01061

PATIENT
  Sex: Male

DRUGS (2)
  1. RIBAVIRIN CAPSULES (NGX) [Suspect]
  2. PEGASYS [Suspect]

REACTIONS (1)
  - INTESTINAL MASS [None]
